FAERS Safety Report 5457555-8 (Version None)
Quarter: 2007Q3

REPORT INFORMATION
  Report Type: 
  Country: None (occurrence: None)
  Receive Date: 20070918
  Receipt Date: 20070913
  Transmission Date: 20080115
  Serious: Yes (Hospitalization)
  Sender: FDA-Public Use
  Company Number: US-ROXANE LABORATORIES, INC-2007-BP-01387BP

PATIENT
  Sex: Male
  Weight: 95 kg

DRUGS (6)
  1. BIBR 1048 (DABIGATRAN ETEXILATE) (BLIND) [Suspect]
     Indication: CEREBROVASCULAR ACCIDENT PROPHYLAXIS
     Route: 048
     Dates: start: 20060417
  2. BIBR 1048 (DABIGATRAN ETEXILATE) (BLIND) [Suspect]
     Indication: THROMBOSIS PROPHYLAXIS
  3. DIGOXIN [Suspect]
     Indication: ARRHYTHMIA PROPHYLAXIS
     Route: 048
     Dates: start: 20060303, end: 20060807
  4. CARTIA XT [Suspect]
     Indication: DRUG THERAPY
     Route: 048
     Dates: start: 20060303, end: 20060807
  5. AMIODARONE HCL [Suspect]
     Indication: ARRHYTHMIA PROPHYLAXIS
     Route: 048
     Dates: start: 20060802
  6. HYDROCHLOROTHIAZIDE [Suspect]
     Indication: DIURETIC THERAPY
     Route: 048
     Dates: start: 20060619, end: 20060825

REACTIONS (5)
  - ATRIAL FIBRILLATION [None]
  - RENAL FAILURE ACUTE [None]
  - SYNCOPE [None]
  - THERAPEUTIC AGENT TOXICITY [None]
  - VENTRICULAR HYPOKINESIA [None]
